FAERS Safety Report 16349022 (Version 1)
Quarter: 2019Q2

REPORT INFORMATION
  Report Type: Spontaneous
  Country: US (occurrence: US)
  Receive Date: 20190523
  Receipt Date: 20190523
  Transmission Date: 20190711
  Serious: Yes (Other)
  Sender: FDA-Public Use
  Company Number: US-NOVOPROD-663299

PATIENT
  Age: 59 Year
  Sex: Female

DRUGS (2)
  1. XULTOPHY 100/3.6 [Suspect]
     Active Substance: INSULIN DEGLUDEC\LIRAGLUTIDE
     Indication: PRODUCT USED FOR UNKNOWN INDICATION
     Dosage: 16 U
     Route: 058
     Dates: start: 20190214
  2. XULTOPHY 100/3.6 [Suspect]
     Active Substance: INSULIN DEGLUDEC\LIRAGLUTIDE
     Dosage: 12 U
     Route: 058
     Dates: end: 2019

REACTIONS (3)
  - Pancreatitis [Unknown]
  - Jaundice [Unknown]
  - Hepatic failure [Unknown]

NARRATIVE: CASE EVENT DATE: 2019
